FAERS Safety Report 18762363 (Version 2)
Quarter: 2021Q1

REPORT INFORMATION
  Report Type: Spontaneous
  Country: US (occurrence: US)
  Receive Date: 20210120
  Receipt Date: 20210126
  Transmission Date: 20210419
  Serious: No
  Sender: FDA-Public Use
  Company Number: US-DSJP-DSU-2021-101253

PATIENT
  Sex: Male

DRUGS (1)
  1. CEVIMELINE HYDROCHLORIDE HYDRATE [Suspect]
     Active Substance: CEVIMELINE HYDROCHLORIDE
     Indication: PRODUCT USED FOR UNKNOWN INDICATION
     Dosage: 30 MG
     Route: 065

REACTIONS (1)
  - Drug ineffective [Unknown]
